FAERS Safety Report 5604946-8 (Version None)
Quarter: 2008Q1

REPORT INFORMATION
  Report Type: 
  Country: None (occurrence: None)
  Receive Date: 20080128
  Receipt Date: 20080108
  Transmission Date: 20080703
  Serious: No
  Sender: FDA-Public Use
  Company Number: US-BOEHRINGER INGELHEIM PHARMACEUTICALS, INC.-2008-BP-00476BP

PATIENT
  Sex: Female

DRUGS (2)
  1. SPIRIVA [Suspect]
     Indication: ASTHMA
     Dates: start: 20070101, end: 20070101
  2. SPIRIVA [Suspect]
     Indication: EMPHYSEMA

REACTIONS (2)
  - APHONIA [None]
  - DRUG INEFFECTIVE [None]
